FAERS Safety Report 12082661 (Version 1)
Quarter: 2016Q1

REPORT INFORMATION
  Report Type: Spontaneous
  Country: US (occurrence: None)
  Receive Date: 20160212
  Receipt Date: 20160212
  Transmission Date: 20160526
  Serious: No
  Sender: FDA-Public Use
  Company Number: None

PATIENT
  Age: 31 Year
  Sex: Female

DRUGS (1)
  1. SODIUM CHLORIDE 7% NEPHRON PHARMACEUTICAL [Suspect]
     Active Substance: SODIUM CHLORIDE
     Indication: CYSTIC FIBROSIS
     Dosage: 1 VIAL 7%, BID, INHALATION
     Route: 055
     Dates: start: 20150915

REACTIONS (1)
  - Haemorrhage [None]
